FAERS Safety Report 10928017 (Version 10)
Quarter: 2015Q3

REPORT INFORMATION
  Report Type: Report from Study
  Country: DE (occurrence: DE)
  Receive Date: 20150319
  Receipt Date: 20150806
  Transmission Date: 20151125
  Serious: Yes (Death, Hospitalization)
  Sender: FDA-Public Use
  Company Number: DE-ROCHE-1529792

PATIENT
  Sex: Male

DRUGS (16)
  1. GRANISETRON [Concomitant]
     Active Substance: GRANISETRON
     Indication: VOMITING
     Route: 042
     Dates: start: 20141203, end: 20150311
  2. METFORMIN [Concomitant]
     Active Substance: METFORMIN HYDROCHLORIDE
     Indication: DIABETES MELLITUS
     Route: 048
  3. DOXORUBICINE [Suspect]
     Active Substance: DOXORUBICIN
     Indication: B-CELL LYMPHOMA
     Dosage: LAST DOSE PRIOR TO SAE 07/JAN/2015?LAST DOSE PRIOR TO SAES WITH ONSET DATE 24/FEB/2015 ON 19/FEB/201
     Route: 042
     Dates: start: 20141203, end: 20150311
  4. SITAGLIPTINA/METFORMINA [Concomitant]
     Indication: DIABETES MELLITUS
     Dosage: 50/850 MG DAILY
     Route: 048
  5. RITUXIMAB [Suspect]
     Active Substance: RITUXIMAB
     Indication: B-CELL LYMPHOMA
     Dosage: LAST DOSE PRIOR TO SAE 06/JAN/2015?LAST DOSE PRIOR TO SAES WITH ONSET DATE 24/FEB/2015 ON 18/FEB/201
     Route: 042
     Dates: start: 20141202, end: 20150413
  6. SITAGLIPTINA/METFORMINA [Concomitant]
     Route: 065
     Dates: end: 20150608
  7. PANTOPRAZOLE [Concomitant]
     Active Substance: PANTOPRAZOLE SODIUM
     Indication: PROPHYLAXIS
     Route: 048
     Dates: end: 20150608
  8. MORPHINE [Concomitant]
     Active Substance: MORPHINE
     Indication: PAIN
     Route: 048
     Dates: start: 201504, end: 20150608
  9. VINCRISTINE [Suspect]
     Active Substance: VINCRISTINE
     Indication: B-CELL LYMPHOMA
     Dosage: LAST DOSE PRIOR TO SAE 07/JAN/2015?LAST DOSE PRIOR TO SAES WITH ONSET DATE 24/FEB/2015 ON 19/FEB/201
     Route: 042
     Dates: start: 20141203, end: 20150311
  10. MESNA. [Concomitant]
     Active Substance: MESNA
     Indication: PROPHYLAXIS
     Route: 048
     Dates: start: 20141203, end: 20150311
  11. METAMIZOLE SODIUM [Concomitant]
     Active Substance: METAMIZOLE SODIUM
     Indication: PAIN
     Route: 042
     Dates: start: 20141202, end: 20150311
  12. PREDNISONE. [Suspect]
     Active Substance: PREDNISONE
     Indication: B-CELL LYMPHOMA
     Dosage: 5 DAYS A CYCLE?LAST DOSE PRIOR TO SAE 07/JAN/2015?LAST DOSE PRIOR TO SAES WITH ONSET DATE 24/FEB/201
     Route: 048
     Dates: start: 20141203, end: 20150315
  13. SULFAMETHOXAZOLE/TRIMETHOPRIM [Concomitant]
     Active Substance: SULFAMETHOXAZOLE\TRIMETHOPRIM
     Indication: PROPHYLAXIS
     Dosage: 2 DAYS/WEEK
     Route: 048
     Dates: start: 20141206
  14. PEGFILGRASTIM [Suspect]
     Active Substance: PEGFILGRASTIM
     Indication: B-CELL LYMPHOMA
     Route: 058
     Dates: start: 20141205, end: 20150314
  15. CYCLOPHOSPHAMIDE. [Suspect]
     Active Substance: CYCLOPHOSPHAMIDE
     Indication: B-CELL LYMPHOMA
     Dosage: LAST DOSE PRIOR TO SAE 07/JAN/2015?LAST DOSE PRIOR TO SAES WITH ONSET DATE 24/FEB/2015 ON 19/FEB/201
     Route: 042
     Dates: start: 20141203, end: 20150311
  16. ACICLOVIR [Concomitant]
     Active Substance: ACYCLOVIR
     Indication: PROPHYLAXIS
     Route: 048
     Dates: start: 20141202

REACTIONS (10)
  - Pain [Recovering/Resolving]
  - Anaemia of malignant disease [Not Recovered/Not Resolved]
  - Leukopenia [Recovered/Resolved]
  - Anaemia [Recovered/Resolved]
  - Pneumonia [Not Recovered/Not Resolved]
  - Pancreatic carcinoma [Fatal]
  - Thrombocytopenia [Recovered/Resolved]
  - General physical health deterioration [Not Recovered/Not Resolved]
  - Lymphoma [Fatal]
  - Nausea [Recovered/Resolved]

NARRATIVE: CASE EVENT DATE: 20150116
